FAERS Safety Report 21928726 (Version 1)
Quarter: 2023Q1

REPORT INFORMATION
  Report Type: Report from Study
  Country: RO (occurrence: RO)
  Receive Date: 20230131
  Receipt Date: 20230131
  Transmission Date: 20230418
  Serious: Yes (Death)
  Sender: FDA-Public Use
  Company Number: RO-ABBVIE-4288364

PATIENT
  Age: 78 Year
  Sex: Male

DRUGS (2)
  1. CARBIDOPA\LEVODOPA [Suspect]
     Active Substance: CARBIDOPA\LEVODOPA
     Indication: Parkinson^s disease
     Dosage: DM 10.00, DC 3.50, ED 1.80, NRED 2, DMN 0.00, DCN 0.00, EDN, 0.00 NREDN, 0
     Route: 050
     Dates: start: 20170502, end: 20230125
  2. CARBIDOPA\LEVODOPA [Suspect]
     Active Substance: CARBIDOPA\LEVODOPA

REACTIONS (1)
  - Cardio-respiratory arrest [Fatal]
